FAERS Safety Report 6271484-1 (Version None)
Quarter: 2009Q3

REPORT INFORMATION
  Report Type: 
  Country: None (occurrence: None)
  Receive Date: 20090717
  Receipt Date: 20090710
  Transmission Date: 20100115
  Serious: Yes (Other)
  Sender: FDA-Public Use
  Company Number: PHHY2008MX31555

PATIENT
  Age: 30 Year
  Sex: Female

DRUGS (2)
  1. ZELMAC [Suspect]
     Indication: IRRITABLE BOWEL SYNDROME
     Dosage: 6 MG, 2 TABS A DAY
     Route: 048
     Dates: start: 20080201, end: 20080601
  2. ZELMAC [Suspect]
     Indication: ABDOMINAL PAIN
     Dosage: 6 MG, 2 TABS A DAY
     Route: 048
     Dates: start: 20081201, end: 20090401

REACTIONS (2)
  - COLITIS [None]
  - PAIN [None]
